FAERS Safety Report 9049807 (Version 1)
Quarter: 2013Q1

REPORT INFORMATION
  Report Type: Report from Study
  Country: US (occurrence: US)
  Receive Date: 20130205
  Receipt Date: 20130205
  Transmission Date: 20140127
  Serious: Yes (Hospitalization, Other)
  Sender: FDA-Public Use
  Company Number: US-ABBOTT-13P-163-1040112-00

PATIENT
  Sex: Female

DRUGS (2)
  1. HUMIRA [Suspect]
     Indication: CROHN^S DISEASE
     Dates: start: 20121023, end: 20130104
  2. HUMIRA [Suspect]
     Dates: start: 20130120

REACTIONS (6)
  - Anal fistula [Recovered/Resolved]
  - Rectal abscess [Recovered/Resolved]
  - Nausea [Unknown]
  - Vomiting [Unknown]
  - Oral pustule [Unknown]
  - Weight decreased [Unknown]
